FAERS Safety Report 4917840-2 (Version None)
Quarter: 2006Q1

REPORT INFORMATION
  Report Type: 
  Country: None (occurrence: None)
  Receive Date: 20060214
  Receipt Date: 20060130
  Transmission Date: 20060701
  Serious: Yes (Hospitalization)
  Sender: FDA-Public Use
  Company Number: 2006000248

PATIENT
  Age: 50 Year
  Sex: Male

DRUGS (2)
  1. TARCEVA [Suspect]
     Indication: LUNG NEOPLASM MALIGNANT
     Dosage: 100 MG (QD), ORAL
     Route: 048
     Dates: start: 20051011, end: 20051216
  2. RABEPRAZOLE SODIUM [Concomitant]

REACTIONS (4)
  - ACNE [None]
  - ECZEMA [None]
  - RASH [None]
  - SKIN LESION [None]
